FAERS Safety Report 20545587 (Version 1)
Quarter: 2022Q1

REPORT INFORMATION
  Report Type: Spontaneous
  Country: US (occurrence: None)
  Receive Date: 20220302
  Receipt Date: 20220302
  Transmission Date: 20220424
  Serious: Yes (Hospitalization)
  Sender: FDA-Public Use
  Company Number: None

PATIENT
  Age: 67 Year
  Sex: Female

DRUGS (1)
  1. CAPECITABINE [Suspect]
     Active Substance: CAPECITABINE
     Dosage: FREQUENCY : TWICE A DAY;?
     Route: 048
     Dates: start: 202201, end: 202202

REACTIONS (5)
  - Drug ineffective [None]
  - Loss of consciousness [None]
  - Unresponsive to stimuli [None]
  - Hospice care [None]
  - Therapy interrupted [None]

NARRATIVE: CASE EVENT DATE: 20220202
